FAERS Safety Report 20952266 (Version 1)
Quarter: 2022Q2

REPORT INFORMATION
  Report Type: Other
  Country: US (occurrence: None)
  Receive Date: 20220613
  Receipt Date: 20220613
  Transmission Date: 20220721
  Serious: Yes (Other)
  Sender: FDA-Public Use
  Company Number: US-ROCHE-1880655

PATIENT
  Age: 62 Year
  Sex: Female
  Weight: 81.266 kg

DRUGS (3)
  1. RITUXAN [Suspect]
     Active Substance: RITUXIMAB
     Indication: Relapsing multiple sclerosis
     Dosage: DAY 1 AND DAY 15
     Route: 042
     Dates: start: 2016, end: 2017
  2. OCRELIZUMAB [Suspect]
     Active Substance: OCRELIZUMAB
     Indication: Relapsing multiple sclerosis
     Route: 065
     Dates: start: 201701
  3. PRAVASTATIN [Suspect]
     Active Substance: PRAVASTATIN
     Indication: Product used for unknown indication
     Route: 065

REACTIONS (14)
  - Malaise [Not Recovered/Not Resolved]
  - Pyrexia [Recovered/Resolved]
  - Muscular weakness [Not Recovered/Not Resolved]
  - Balance disorder [Not Recovered/Not Resolved]
  - Off label use [Unknown]
  - Fall [Unknown]
  - Eye contusion [Recovered/Resolved]
  - Movement disorder [Recovered/Resolved]
  - Urinary tract infection [Recovered/Resolved]
  - Amnesia [Recovered/Resolved]
  - Oropharyngeal pain [Recovered/Resolved]
  - Rhabdomyolysis [Recovered/Resolved]
  - Pyrexia [Recovered/Resolved]
  - Retinal detachment [Recovering/Resolving]

NARRATIVE: CASE EVENT DATE: 20180730
